FAERS Safety Report 16237174 (Version 2)
Quarter: 2020Q2

REPORT INFORMATION
  Report Type: Spontaneous
  Country: GB (occurrence: GB)
  Receive Date: 20190425
  Receipt Date: 20200626
  Transmission Date: 20200713
  Serious: Yes (Hospitalization, Other)
  Sender: FDA-Public Use
  Company Number: GB-SUN PHARMACEUTICAL INDUSTRIES LTD-2019R1-205880

PATIENT
  Age: 84 Year
  Sex: Female

DRUGS (1)
  1. PARACETAMOL [Suspect]
     Active Substance: ACETAMINOPHEN
     Indication: PRODUCT USED FOR UNKNOWN INDICATION
     Dosage: UNK, 60 GRAM
     Route: 065

REACTIONS (4)
  - Metabolic disorder [Recovered/Resolved]
  - Mitochondrial toxicity [Recovered/Resolved]
  - Hypotension [Recovered/Resolved]
  - Overdose [Unknown]
